FAERS Safety Report 11590905 (Version 1)
Quarter: 2015Q4

REPORT INFORMATION
  Report Type: Report from Study
  Country: US (occurrence: US)
  Receive Date: 20151003
  Receipt Date: 20151003
  Transmission Date: 20160304
  Serious: Yes (Other)
  Sender: FDA-Public Use
  Company Number: US-ABBVIE-15K-163-1470864-00

PATIENT
  Sex: Female
  Weight: 81.72 kg

DRUGS (2)
  1. HUMIRA [Suspect]
     Active Substance: ADALIMUMAB
     Indication: PSORIATIC ARTHROPATHY
     Route: 058
     Dates: start: 2011, end: 201508
  2. HUMIRA [Suspect]
     Active Substance: ADALIMUMAB
     Indication: PSORIASIS

REACTIONS (3)
  - Foot deformity [Recovered/Resolved]
  - Psoriatic arthropathy [Recovering/Resolving]
  - Skin ulcer [Recovered/Resolved]

NARRATIVE: CASE EVENT DATE: 2015
